FAERS Safety Report 11364562 (Version 1)
Quarter: 2015Q3

REPORT INFORMATION
  Report Type: Spontaneous
  Country: US (occurrence: None)
  Receive Date: 20150810
  Receipt Date: 20150810
  Transmission Date: 20151125
  Serious: Yes (Hospitalization, Disabling, Other)
  Sender: FDA-Public Use
  Company Number: None

PATIENT
  Age: 17 Month
  Sex: Male
  Weight: 13.15 kg

DRUGS (4)
  1. BABY TEETHING [Suspect]
     Active Substance: ATROPA BELLADONNA\CALCIUM PHOSPHATE\CHAMOMILE\COFFEA ARABICA FRUIT
     Indication: TEETHING
     Dosage: 2 TO 3 TABLETS 4 TIMES DAILY
     Route: 048
     Dates: start: 20150306, end: 20150531
  2. BABY TEETHING [Suspect]
     Active Substance: ATROPA BELLADONNA\CALCIUM PHOSPHATE\CHAMOMILE\COFFEA ARABICA FRUIT
     Indication: GINGIVAL PAIN
     Dosage: 2 TO 3 TABLETS 4 TIMES DAILY
     Route: 048
     Dates: start: 20150306, end: 20150531
  3. LEVETIRACETAM. [Concomitant]
     Active Substance: LEVETIRACETAM
  4. KEPPRA [Concomitant]
     Active Substance: LEVETIRACETAM

REACTIONS (1)
  - Seizure [None]

NARRATIVE: CASE EVENT DATE: 20150809
